FAERS Safety Report 5352622-1 (Version None)
Quarter: 2007Q2

REPORT INFORMATION
  Report Type: 
  Country: None (occurrence: None)
  Receive Date: 20070611
  Receipt Date: 20070601
  Transmission Date: 20071010
  Serious: Yes (Life-Threatening, Hospitalization, Disabling, Other)
  Sender: FDA-Public Use
  Company Number: CH-ELI_LILLY_AND_COMPANY-CH200704005399

PATIENT
  Sex: Female
  Weight: 60 kg

DRUGS (8)
  1. DEXAMETHASONE 0.5MG TAB [Concomitant]
     Indication: PROPHYLAXIS
     Dosage: 12 MG, UNK
     Route: 048
     Dates: start: 20061205, end: 20061227
  2. FOLIC ACID [Concomitant]
     Indication: PROPHYLAXIS
     Dosage: 1 MG, EACH MORNING
     Route: 048
     Dates: start: 20061129
  3. VITARUBIN [Concomitant]
     Indication: PROPHYLAXIS
     Dosage: 2000 MG, UNK
     Route: 030
     Dates: start: 20061129
  4. NEXIUM [Concomitant]
     Dosage: 40 MG, EACH MORNING
     Route: 048
  5. DAFALGAN [Concomitant]
     Dosage: 4 G, DAILY (1/D)
     Dates: start: 20060831
  6. NEURONTIN [Concomitant]
     Dosage: 300 MG, 3/D
     Dates: start: 20060831
  7. SIRDALUD [Concomitant]
     Dosage: 6 MG, DAILY (1/D)
     Dates: start: 20061205
  8. ALIMTA [Suspect]
     Indication: NON-SMALL CELL LUNG CANCER
     Dosage: 800 MG, UNK
     Route: 042
     Dates: start: 20061205, end: 20061227

REACTIONS (3)
  - BACTERIAL INFECTION [None]
  - MUSCLE NECROSIS [None]
  - RECALL PHENOMENON [None]
